FAERS Safety Report 4766716-2 (Version None)
Quarter: 2005Q3

REPORT INFORMATION
  Report Type: 
  Country: None (occurrence: None)
  Receive Date: 20050912
  Receipt Date: 20050831
  Transmission Date: 20060218
  Serious: Yes (Other)
  Sender: FDA-Public Use
  Company Number: 2005122906

PATIENT
  Sex: Female
  Weight: 53.978 kg

DRUGS (12)
  1. CELEBREX [Suspect]
     Indication: ARTHRALGIA
     Dosage: 200 MG (200 MG, 1 IN 1 D) ORAL
     Route: 048
  2. PROCARDIA (NIFEDIINE) [Concomitant]
  3. TENORMIN [Concomitant]
  4. POTASSIUM(POTASSIUM) [Concomitant]
  5. PRAVACHOL [Concomitant]
  6. PAXIL [Concomitant]
  7. PLAVIX [Concomitant]
  8. ASPIRIN [Concomitant]
  9. LASIX [Concomitant]
  10. LIBRIUM [Concomitant]
  11. TRAMADOL (TRAMDOL) [Concomitant]
  12. AMIODARONE HCL [Concomitant]

REACTIONS (10)
  - AORTIC ANEURYSM [None]
  - BACK DISORDER [None]
  - CONDITION AGGRAVATED [None]
  - DRUG INEFFECTIVE [None]
  - ECONOMIC PROBLEM [None]
  - INFECTION [None]
  - OEDEMA PERIPHERAL [None]
  - POOR QUALITY DRUG ADMINISTERED [None]
  - ROTATOR CUFF SYNDROME [None]
  - TREATMENT NONCOMPLIANCE [None]
